FAERS Safety Report 12435908 (Version 1)
Quarter: 2016Q2

REPORT INFORMATION
  Report Type: Spontaneous
  Country: US (occurrence: US)
  Receive Date: 20160604
  Receipt Date: 20160604
  Transmission Date: 20160815
  Serious: Yes (Life-Threatening, Hospitalization)
  Sender: FDA-Public Use
  Company Number: US-AUROBINDO-AUR-APL-2016-07078

PATIENT
  Age: 2 Year
  Sex: Female

DRUGS (1)
  1. FLECAINIDE [Suspect]
     Active Substance: FLECAINIDE
     Indication: PRODUCT USED FOR UNKNOWN INDICATION
     Route: 065

REACTIONS (7)
  - Electrocardiogram QRS complex prolonged [Recovered/Resolved]
  - Bradycardia [Recovered/Resolved]
  - Seizure [Recovered/Resolved]
  - Cardiac arrest [Recovered/Resolved]
  - Arrhythmia [Recovered/Resolved]
  - Accidental exposure to product [Recovered/Resolved]
  - Hypotension [Recovered/Resolved]
